FAERS Safety Report 21640378 (Version 1)
Quarter: 2022Q4

REPORT INFORMATION
  Report Type: Report from Study
  Country: US (occurrence: US)
  Receive Date: 20221124
  Receipt Date: 20221124
  Transmission Date: 20230113
  Serious: No
  Sender: FDA-Public Use
  Company Number: US-ABBVIE-4161449

PATIENT
  Age: 46 Year
  Sex: Female

DRUGS (6)
  1. HUMIRA [Suspect]
     Active Substance: ADALIMUMAB
     Indication: Psoriasis
     Dosage: FORM STRENGTH: 40 MG
     Route: 058
  2. HUMIRA [Suspect]
     Active Substance: ADALIMUMAB
     Indication: Colitis ulcerative
  3. HUMIRA [Suspect]
     Active Substance: ADALIMUMAB
     Indication: Psoriatic arthropathy
  4. Pfizer/BioNTech [Concomitant]
     Indication: COVID-19 immunisation
     Dosage: ONCE, FIRST DOSE
     Route: 030
     Dates: start: 20210412, end: 20210412
  5. Pfizer/BioNTech [Concomitant]
     Indication: COVID-19 immunisation
     Dosage: ONCE, SECOND DOSE
     Route: 030
     Dates: start: 20210503, end: 20210503
  6. Pfizer/BioNTech [Concomitant]
     Indication: COVID-19 immunisation
     Dosage: ONCE, BOOSTER DOSE
     Route: 030
     Dates: start: 20210820, end: 20210820

REACTIONS (1)
  - Arthralgia [Recovering/Resolving]

NARRATIVE: CASE EVENT DATE: 20220923
